FAERS Safety Report 5416989-8 (Version None)
Quarter: 2007Q3

REPORT INFORMATION
  Report Type: 
  Country: None (occurrence: None)
  Receive Date: 20070816
  Receipt Date: 20070806
  Transmission Date: 20080115
  Serious: Yes (Other)
  Sender: FDA-Public Use
  Company Number: US-PFIZER INC-2007066551

PATIENT
  Sex: Male
  Weight: 88.181 kg

DRUGS (10)
  1. CHANTIX [Suspect]
     Indication: SMOKING CESSATION THERAPY
     Route: 048
     Dates: start: 20070601, end: 20070803
  2. NORVASC [Concomitant]
     Route: 048
  3. LIPITOR [Concomitant]
     Route: 048
  4. ZETIA [Concomitant]
     Route: 048
  5. HYDROCHLOROTHIAZIDE [Concomitant]
     Route: 048
  6. ATENOLOL [Concomitant]
     Route: 048
  7. ASPIRIN [Concomitant]
     Route: 048
  8. MULTIVITAMIN [Concomitant]
     Route: 048
  9. FISH OIL [Concomitant]
     Route: 048
  10. SYNTHROID [Concomitant]
     Route: 048

REACTIONS (3)
  - ANAEMIA [None]
  - BLOOD CREATINE INCREASED [None]
  - NIGHTMARE [None]
